FAERS Safety Report 6712187-6 (Version None)
Quarter: 2010Q2

REPORT INFORMATION
  Report Type: 
  Country: None (occurrence: None)
  Receive Date: 20100505
  Receipt Date: 20100419
  Transmission Date: 20101027
  Serious: Yes (Hospitalization)
  Sender: FDA-Public Use
  Company Number: PHHO2010US06161

PATIENT
  Sex: Female
  Weight: 77.2 kg

DRUGS (2)
  1. AFINITOR [Suspect]
     Indication: BREAST CANCER
     Dosage: 5 MG
     Route: 048
     Dates: start: 20090805, end: 20100414
  2. ABRAXANE COMP-ABR+ [Suspect]
     Indication: BREAST CANCER
     Dosage: 80 MG/M2
     Route: 042
     Dates: start: 20090805, end: 20100401

REACTIONS (4)
  - ACTIVITIES OF DAILY LIVING IMPAIRED [None]
  - BACK PAIN [None]
  - DYSPNOEA [None]
  - PAIN IN EXTREMITY [None]
